FAERS Safety Report 6160995-5 (Version None)
Quarter: 2009Q2

REPORT INFORMATION
  Report Type: 
  Country: None (occurrence: None)
  Receive Date: 20090420
  Receipt Date: 20090409
  Transmission Date: 20091009
  Serious: Yes (Hospitalization)
  Sender: FDA-Public Use
  Company Number: SG-PFIZER INC-2008019898

PATIENT

DRUGS (18)
  1. BLINDED *PLACEBO [Suspect]
     Indication: CARDIAC FAILURE
     Route: 048
     Dates: start: 20080214, end: 20080229
  2. BLINDED EPLERENONE [Suspect]
     Indication: CARDIAC FAILURE
     Route: 048
     Dates: start: 20080214, end: 20080229
  3. BLINDED *PLACEBO [Suspect]
     Route: 048
     Dates: start: 20080312
  4. BLINDED EPLERENONE [Suspect]
     Route: 048
     Dates: start: 20080312
  5. VALSARTAN [Concomitant]
     Route: 048
     Dates: start: 20070416
  6. BISOPROLOL [Concomitant]
     Route: 048
     Dates: start: 20050826
  7. FRUSEMIDE [Concomitant]
     Route: 048
     Dates: start: 20050812
  8. DIGOXIN [Concomitant]
     Route: 048
     Dates: start: 20071219
  9. WARFARIN SODIUM [Concomitant]
     Route: 048
     Dates: start: 20050826
  10. GLIPIZIDE [Concomitant]
     Route: 048
     Dates: start: 20050716
  11. METFORMIN HCL [Concomitant]
     Route: 048
     Dates: start: 20050812
  12. VITAMIN B COMPLEX CAP [Concomitant]
     Route: 048
     Dates: start: 20071216
  13. POTASSIUM CHLORIDE [Concomitant]
     Route: 048
     Dates: start: 20071217
  14. MAGNESIUM TRISILICATE [Concomitant]
     Route: 048
     Dates: start: 20071221
  15. OMEPRAZOLE [Concomitant]
     Route: 048
     Dates: start: 20050717
  16. VYTORIN [Concomitant]
     Route: 048
     Dates: start: 20071216
  17. POTASSIUM CHLORIDE [Concomitant]
     Route: 048
     Dates: start: 20080229, end: 20080301
  18. SPAN-K [Concomitant]
     Route: 048
     Dates: start: 20080301, end: 20080306

REACTIONS (5)
  - CARDIAC FAILURE [None]
  - CONDITION AGGRAVATED [None]
  - NAUSEA [None]
  - UPPER RESPIRATORY TRACT INFECTION [None]
  - VERTIGO [None]
